FAERS Safety Report 12179640 (Version 1)
Quarter: 2016Q1

REPORT INFORMATION
  Report Type: Spontaneous
  Country: US (occurrence: None)
  Receive Date: 20160314
  Receipt Date: 20160314
  Transmission Date: 20160526
  Serious: No
  Sender: FDA-Public Use
  Company Number: None

PATIENT
  Sex: Female

DRUGS (1)
  1. HUMIRA [Suspect]
     Active Substance: ADALIMUMAB
     Indication: POLYARTHRITIS
     Dosage: EVERY 2 WEEKS
     Route: 058
     Dates: start: 20150916

REACTIONS (4)
  - Ear pain [None]
  - Asthenia [None]
  - Fatigue [None]
  - Headache [None]
